FAERS Safety Report 12920987 (Version 1)
Quarter: 2016Q4

REPORT INFORMATION
  Report Type: Spontaneous
  Country: IT (occurrence: IT)
  Receive Date: 20161107
  Receipt Date: 20161107
  Transmission Date: 20170207
  Serious: Yes (Other)
  Sender: FDA-Public Use
  Company Number: ALCN2016IT007375

PATIENT
  Age: 63 Year

DRUGS (2)
  1. PREDNISOLONE. [Suspect]
     Active Substance: PREDNISOLONE
     Indication: PRODUCT USED FOR UNKNOWN INDICATION
     Dosage: 80 MG, QD
     Route: 048
  2. TRIAMCINOLONE ACETONIDE. [Suspect]
     Active Substance: TRIAMCINOLONE ACETONIDE
     Indication: PRODUCT USED FOR UNKNOWN INDICATION
     Dosage: UNK
     Route: 056

REACTIONS (11)
  - Subretinal fluid [Recovered/Resolved]
  - Choroidal effusion [Recovered/Resolved]
  - Cataract subcapsular [Unknown]
  - Retinal detachment [Recovered/Resolved]
  - Chorioretinal folds [Recovered/Resolved]
  - Choroidal dystrophy [Recovered/Resolved]
  - Flat anterior chamber of eye [Unknown]
  - Chorioretinal atrophy [Recovered/Resolved]
  - Retinal degeneration [Recovered/Resolved]
  - Blindness [Recovered/Resolved]
  - Choroidal haematoma [Recovered/Resolved]
